FAERS Safety Report 14138894 (Version 1)
Quarter: 2017Q4

REPORT INFORMATION
  Report Type: Report from Study
  Country: US (occurrence: US)
  Receive Date: 20171027
  Receipt Date: 20171027
  Transmission Date: 20180321
  Serious: Yes (Other)
  Sender: FDA-Public Use
  Company Number: US-TAKEDA-2017TUS021998

PATIENT
  Sex: Female
  Weight: 86.17 kg

DRUGS (12)
  1. RAMELTEON [Suspect]
     Active Substance: RAMELTEON
     Indication: INSOMNIA
     Dosage: 8 MG, QD
     Route: 048
     Dates: start: 201703
  2. LAMOTRIGINE. [Concomitant]
     Active Substance: LAMOTRIGINE
     Indication: BIPOLAR DISORDER
     Dosage: 400 MG, UNK
     Route: 048
  3. LATUDA [Concomitant]
     Active Substance: LURASIDONE HYDROCHLORIDE
     Indication: BIPOLAR DISORDER
     Dosage: 120 MG, QD
     Route: 048
  4. BUPROPION. [Concomitant]
     Active Substance: BUPROPION
     Indication: DEPRESSION
     Dosage: 200 MG, QD
     Route: 048
     Dates: start: 2005
  5. ALLOPURINOL. [Concomitant]
     Active Substance: ALLOPURINOL
     Indication: GOUT
     Dosage: 100 MG, BID
     Route: 048
  6. LAMOTRIGINE. [Concomitant]
     Active Substance: LAMOTRIGINE
     Dosage: 350 MG, QD
     Route: 048
  7. VALIUM [Concomitant]
     Active Substance: DIAZEPAM
     Dosage: UNK UNK, QD
     Route: 048
  8. NAPROXEN. [Concomitant]
     Active Substance: NAPROXEN
     Indication: INTERVERTEBRAL DISC DEGENERATION
     Dosage: 550 MG, BID
     Route: 048
  9. OMEPRAZOLE. [Concomitant]
     Active Substance: OMEPRAZOLE
     Indication: GASTROOESOPHAGEAL REFLUX DISEASE
     Dosage: 20 MG, UNK
     Route: 048
  10. AMBIEN [Concomitant]
     Active Substance: ZOLPIDEM TARTRATE
     Indication: INSOMNIA
     Dosage: 2.5 MG, QD
     Route: 048
  11. FLONASE                            /00908302/ [Concomitant]
     Active Substance: MOMETASONE FUROATE
     Indication: MULTIPLE ALLERGIES
     Dosage: UNK
     Route: 045
  12. ESTRADIOL. [Concomitant]
     Active Substance: ESTRADIOL
     Dosage: 1 MG, UNK
     Route: 048

REACTIONS (2)
  - Fall [Not Recovered/Not Resolved]
  - Loss of consciousness [Not Recovered/Not Resolved]

NARRATIVE: CASE EVENT DATE: 2017
